FAERS Safety Report 8337525-2 (Version None)
Quarter: 2012Q2

REPORT INFORMATION
  Report Type: 
  Country: None (occurrence: None)
  Receive Date: 20120504
  Receipt Date: 20110824
  Transmission Date: 20120825
  Serious: No
  Sender: FDA-Public Use
  Company Number: US-TEVA-2011004462

PATIENT
  Age: 56 Year
  Sex: Female

DRUGS (1)
  1. NUVIGIL [Suspect]
     Dosage: 150 MILLIGRAM;
     Route: 048
     Dates: start: 20100101

REACTIONS (2)
  - LIVER FUNCTION TEST ABNORMAL [None]
  - RASH [None]
